FAERS Safety Report 9040837 (Version 1)
Quarter: 2013Q1

REPORT INFORMATION
  Report Type: Spontaneous
  Country: US (occurrence: None)
  Receive Date: 20130123
  Receipt Date: 20130123
  Transmission Date: 20140127
  Serious: No
  Sender: FDA-Public Use
  Company Number: None

PATIENT
  Age: 70 Year
  Sex: Male
  Weight: 65 kg

DRUGS (1)
  1. DABIGATRAN [Suspect]
     Dosage: 150 MG  BID  PO
     Route: 048
     Dates: start: 20120302, end: 20130107

REACTIONS (4)
  - Tachycardia [None]
  - Malaise [None]
  - Abdominal pain [None]
  - Drug intolerance [None]
